FAERS Safety Report 4925302-1 (Version None)
Quarter: 2006Q1

REPORT INFORMATION
  Report Type: 
  Country: None (occurrence: None)
  Receive Date: 20060228
  Receipt Date: 20060218
  Transmission Date: 20060701
  Serious: Yes (Hospitalization, Other)
  Sender: FDA-Public Use
  Company Number: GB-GLAXOSMITHKLINE-B0412790A

PATIENT
  Age: 45 Year
  Sex: Female

DRUGS (8)
  1. AVANDAMET [Suspect]
     Dosage: 4MG PER DAY
     Route: 048
     Dates: end: 20060124
  2. FLUCLOXACILLIN [Concomitant]
     Dosage: 250MG TWICE PER DAY
     Route: 048
  3. GLICLAZIDE [Concomitant]
     Dosage: 80MG TWICE PER DAY
     Route: 048
  4. ATENOLOL [Concomitant]
     Dosage: 50MG PER DAY
     Route: 048
  5. ASPIRIN [Concomitant]
     Dosage: 75MG PER DAY
     Route: 048
  6. AMITRIPTYLINE HCL [Concomitant]
     Dosage: 25MG PER DAY
     Route: 048
  7. ACARBOSE [Concomitant]
     Dosage: 50MG THREE TIMES PER DAY
     Route: 048
  8. GTN-S [Concomitant]
     Route: 065

REACTIONS (2)
  - DYSPNOEA [None]
  - PULMONARY OEDEMA [None]
